FAERS Safety Report 16467207 (Version 1)
Quarter: 2019Q2

REPORT INFORMATION
  Report Type: Spontaneous
  Country: US (occurrence: US)
  Receive Date: 20190624
  Receipt Date: 20190624
  Transmission Date: 20190711
  Serious: Yes (Hospitalization, Disabling)
  Sender: FDA-Public Use
  Company Number: US-SA-2019SA168751

PATIENT
  Age: 80 Year
  Sex: Male

DRUGS (1)
  1. PRALUENT [Suspect]
     Active Substance: ALIROCUMAB
     Dosage: 150 MG, QOW
     Route: 058

REACTIONS (12)
  - Diarrhoea [Recovering/Resolving]
  - Arthralgia [Recovering/Resolving]
  - Renal disorder [Recovering/Resolving]
  - Nasopharyngitis [Recovering/Resolving]
  - Rhinorrhoea [Recovering/Resolving]
  - Erythema [Recovering/Resolving]
  - Swelling [Recovering/Resolving]
  - Asthenia [Recovering/Resolving]
  - Injury [Recovering/Resolving]
  - Gait inability [Recovering/Resolving]
  - Bronchitis [Recovering/Resolving]
  - Platelet count increased [Recovering/Resolving]

NARRATIVE: CASE EVENT DATE: 20190612
